FAERS Safety Report 5520505-X (Version None)
Quarter: 2007Q4

REPORT INFORMATION
  Report Type: 
  Country: None (occurrence: None)
  Receive Date: 20071119
  Receipt Date: 20071115
  Transmission Date: 20080405
  Serious: Yes (Hospitalization, Other)
  Sender: FDA-Public Use
  Company Number: GBWYE044715MAR07

PATIENT
  Age: 8 Year
  Sex: Male

DRUGS (4)
  1. IBUPROFEN [Suspect]
     Indication: VIRAEMIA
     Route: 048
  2. CEFTRIAXONE [Suspect]
     Indication: LUNG CONSOLIDATION
     Dosage: UNKNOWN
     Route: 042
  3. CEFTRIAXONE [Suspect]
     Indication: MENINGOCOCCAL SEPSIS
  4. PARACETAMOL [Suspect]
     Indication: VIRAEMIA

REACTIONS (6)
  - APPENDICITIS [None]
  - LUNG CONSOLIDATION [None]
  - OVERDOSE [None]
  - RASH MACULAR [None]
  - RENAL PAPILLARY NECROSIS [None]
  - SOMNOLENCE [None]
